FAERS Safety Report 10020834 (Version 3)
Quarter: 2014Q2

REPORT INFORMATION
  Report Type: Report from Study
  Country: HU (occurrence: HU)
  Receive Date: 20140319
  Receipt Date: 20140410
  Transmission Date: 20141212
  Serious: Yes (Hospitalization)
  Sender: FDA-Public Use
  Company Number: HU-ROCHE-1355395

PATIENT
  Age: 66 Year
  Sex: Female

DRUGS (12)
  1. PEG-INTERFERON ALFA 2A [Suspect]
     Indication: HEPATITIS C
     Dosage: PRE-FILLED SYRINGE
     Route: 058
     Dates: start: 20130905
  2. RIBAVIRIN [Suspect]
     Indication: HEPATITIS C
     Dosage: DIVIDED DOSE
     Route: 048
     Dates: start: 20130905, end: 20131002
  3. RIBAVIRIN [Suspect]
     Dosage: DIVIDED DOSE
     Route: 048
     Dates: start: 20131003, end: 20131022
  4. RIBAVIRIN [Suspect]
     Dosage: DIVIDED DOSE
     Route: 048
     Dates: start: 20131023, end: 20131030
  5. TELAPREVIR [Suspect]
     Indication: HEPATITIS C
     Route: 048
     Dates: start: 20130905, end: 20131126
  6. ACCUPRO [Concomitant]
     Indication: HYPERTENSION
     Route: 048
     Dates: start: 2010
  7. AUGMENTAN [Concomitant]
     Indication: COUGH
     Route: 048
     Dates: start: 20131220, end: 20131226
  8. BRINALDIX [Concomitant]
     Indication: HYPERTENSION
     Route: 048
  9. MILURIT [Concomitant]
     Indication: HYPERURICAEMIA
     Route: 048
  10. MILURIT [Concomitant]
     Indication: GOUT
  11. PANTOPRAZOLE [Concomitant]
     Indication: NAUSEA
     Route: 048
     Dates: start: 20130924
  12. KALDYUM [Concomitant]
     Indication: HYPERTENSION
     Route: 048
     Dates: start: 2010

REACTIONS (1)
  - Cough [Recovered/Resolved]
